FAERS Safety Report 6299544-X (Version None)
Quarter: 2009Q3

REPORT INFORMATION
  Report Type: 
  Country: None (occurrence: None)
  Receive Date: 20090803
  Receipt Date: 20090713
  Transmission Date: 20100115
  Serious: Yes (Disabling)
  Sender: FDA-Public Use
  Company Number: APP200900378

PATIENT
  Sex: Female

DRUGS (8)
  1. SENSORCAINE [Suspect]
     Dosage: CONTINOUS VIA PUMP, INTRA-ARTICULAR
     Route: 014
  2. NAROPIN [Suspect]
     Dosage: CONTINUOUS VIA, PUMP INTRA-ARTICULAR
     Route: 014
  3. SENSORCAINE WITH EPINEPHRINE (BUPIVACAINE HYDROCHLORIDE) [Suspect]
  4. XYLOCAINE [Suspect]
  5. XYLOCAINE WITH EPINEPHRINE (XYLOCAINE-EPINEPHRINE) [Suspect]
  6. I FLOW PAINBUSTER PAIN PUMP [Suspect]
  7. MARCAINE [Suspect]
     Indication: JOINT SURGERY
     Dosage: 3 ML, ONCE INTRA-ARTICULAR
     Route: 014
  8. DEPO-MEDROL [Suspect]
     Indication: JOINT SURGERY
     Dosage: 80 MG, ONCE INTRA-ARTICULAR
     Route: 014

REACTIONS (2)
  - CHONDROLYSIS [None]
  - MUSCULOSKELETAL PAIN [None]
